FAERS Safety Report 7783687-5 (Version None)
Quarter: 2011Q3

REPORT INFORMATION
  Report Type: 
  Country: None (occurrence: None)
  Receive Date: 20110928
  Receipt Date: 20110922
  Transmission Date: 20111222
  Serious: Yes (Other)
  Sender: FDA-Public Use
  Company Number: US-ABBOTT-11P-163-0857788-00

PATIENT
  Age: 50 Year

DRUGS (5)
  1. HUMIRA [Suspect]
     Indication: PSORIASIS
     Dosage: (80MG), ONCE
     Dates: start: 20101001, end: 20101001
  2. ENBREL [Suspect]
     Indication: PSORIASIS
     Dates: start: 20110801
  3. ENBREL [Suspect]
     Indication: PSORIATIC ARTHROPATHY
  4. HUMIRA [Suspect]
  5. HUMIRA [Suspect]
     Indication: PSORIATIC ARTHROPATHY

REACTIONS (5)
  - MUSCULOSKELETAL DISORDER [None]
  - MOBILITY DECREASED [None]
  - DEPRESSION [None]
  - DYSARTHRIA [None]
  - DIPLOPIA [None]
